FAERS Safety Report 12979220 (Version 2)
Quarter: 2016Q4

REPORT INFORMATION
  Report Type: Report from Study
  Country: BR (occurrence: BR)
  Receive Date: 20161128
  Receipt Date: 20161201
  Transmission Date: 20170207
  Serious: Yes (Hospitalization, Other)
  Sender: FDA-Public Use
  Company Number: BR-JNJFOC-20161122136

PATIENT
  Sex: Female
  Weight: 59 kg

DRUGS (3)
  1. REMICADE [Suspect]
     Active Substance: INFLIXIMAB
     Indication: CROHN^S DISEASE
     Route: 042
     Dates: start: 2013
  2. AZATHIOPRINE. [Concomitant]
     Active Substance: AZATHIOPRINE
  3. REMICADE [Suspect]
     Active Substance: INFLIXIMAB
     Indication: CROHN^S DISEASE
     Route: 042
     Dates: start: 20130121, end: 2013

REACTIONS (6)
  - Malnutrition [Recovered/Resolved]
  - Off label use [Unknown]
  - Drug ineffective [Recovered/Resolved]
  - Intestinal stenosis [Recovered/Resolved]
  - Product use issue [Unknown]
  - Intestinal obstruction [Recovered/Resolved]

NARRATIVE: CASE EVENT DATE: 2013
